FAERS Safety Report 10034678 (Version 1)
Quarter: 2014Q1

REPORT INFORMATION
  Report Type: Spontaneous
  Country: US (occurrence: None)
  Receive Date: 20140306
  Receipt Date: 20140306
  Transmission Date: 20141002
  Serious: Yes (Other)
  Sender: FDA-Public Use
  Company Number: 163-21880-13032574

PATIENT
  Age: 61 Year
  Sex: Female
  Weight: 76.8 kg

DRUGS (6)
  1. REVLIMID [Suspect]
     Indication: PLASMA CELL MYELOMA
     Dosage: 25 MG, 21 IN 28 D, PO
     Route: 048
     Dates: start: 201203, end: 201207
  2. DEXAMETHASONE (DEXAMETHASONE) [Concomitant]
  3. VELCADE (BORTEZOMIB) [Concomitant]
  4. NEURONTIN (GABAPENTIN) [Concomitant]
  5. OXYCODONE (OXYCODONE) [Concomitant]
  6. FENTANYL (FENTANYL) [Concomitant]

REACTIONS (1)
  - Peripheral sensory neuropathy [None]
